FAERS Safety Report 24157707 (Version 2)
Quarter: 2024Q4

REPORT INFORMATION
  Report Type: Spontaneous
  Country: US (occurrence: US)
  Receive Date: 20240731
  Receipt Date: 20241007
  Transmission Date: 20250115
  Serious: Yes (Hospitalization, Other)
  Sender: BAYER
  Company Number: US-BAYER-2024A106932

PATIENT
  Age: 50 Year
  Sex: Female

DRUGS (3)
  1. MIRENA [Suspect]
     Active Substance: LEVONORGESTREL
     Indication: Intrauterine contraception
     Dosage: 20?G/DAY
     Route: 015
     Dates: start: 202402
  2. REMODULIN [Concomitant]
     Active Substance: TREPROSTINIL
  3. OPSUMIT [Concomitant]
     Active Substance: MACITENTAN

REACTIONS (7)
  - Pneumonia [None]
  - Cough [Not Recovered/Not Resolved]
  - Palpitations [None]
  - Dyspnoea [None]
  - Fatigue [None]
  - Pyrexia [Recovered/Resolved]
  - Dizziness [None]

NARRATIVE: CASE EVENT DATE: 20240705
